FAERS Safety Report 21712010 (Version 2)
Quarter: 2022Q4

REPORT INFORMATION
  Report Type: Other
  Country: CA (occurrence: None)
  Receive Date: 20221212
  Receipt Date: 20221215
  Transmission Date: 20230113
  Serious: Yes (Other)
  Sender: FDA-Public Use
  Company Number: CA-ROCHE-3235418

PATIENT
  Sex: Female

DRUGS (1)
  1. OCREVUS [Suspect]
     Active Substance: OCRELIZUMAB
     Indication: Relapsing-remitting multiple sclerosis
     Dosage: 300 MG AT DAY 0 AND 14, THEN 600 MG EVERY 6 MONTH
     Route: 042
     Dates: start: 20200601

REACTIONS (8)
  - Cellulitis [Unknown]
  - Fatigue [Unknown]
  - Alopecia [Unknown]
  - Weight loss poor [Unknown]
  - Swelling face [Unknown]
  - Fat tissue increased [Unknown]
  - Dysphonia [Unknown]
  - Dyspepsia [Unknown]
